FAERS Safety Report 8523714-0 (Version None)
Quarter: 2012Q3

REPORT INFORMATION
  Report Type: 
  Country: None (occurrence: None)
  Receive Date: 20120720
  Receipt Date: 20120712
  Transmission Date: 20120928
  Serious: Yes (Other)
  Sender: FDA-Public Use
  Company Number: CA-JNJFOC-20120607105

PATIENT
  Sex: Female
  Weight: 85 kg

DRUGS (11)
  1. INFLIXIMAB, RECOMBINANT [Suspect]
     Indication: CROHN'S DISEASE
     Route: 042
     Dates: start: 20110113
  2. INFLIXIMAB, RECOMBINANT [Suspect]
     Route: 042
     Dates: start: 20120613
  3. ATIVAN [Concomitant]
     Route: 065
  4. PENTASA [Concomitant]
     Route: 065
  5. WARFARIN SODIUM [Concomitant]
     Route: 065
  6. ENTEROCORT [Concomitant]
     Route: 065
  7. IMODIUM [Concomitant]
     Route: 065
  8. ALTACE [Concomitant]
     Route: 065
  9. OMEPRAZOLE (PRISOLEC) [Concomitant]
     Route: 065
  10. CODEINE SULFATE [Concomitant]
     Route: 065
  11. AMITRIPTYLINE HCL [Concomitant]
     Route: 065

REACTIONS (5)
  - BLOOD PRESSURE INCREASED [None]
  - CHEST PAIN [None]
  - INFUSION RELATED REACTION [None]
  - MUSCLE SPASMS [None]
  - HEART RATE INCREASED [None]
